FAERS Safety Report 6079559-7 (Version None)
Quarter: 2009Q1

REPORT INFORMATION
  Report Type: 
  Country: None (occurrence: None)
  Receive Date: 20090217
  Receipt Date: 20090205
  Transmission Date: 20090719
  Serious: Yes (Hospitalization)
  Sender: FDA-Public Use
  Company Number: US-JNJFOC-20090107000

PATIENT
  Age: 44 Year
  Sex: Male
  Weight: 57 kg

DRUGS (17)
  1. INTELENCE [Suspect]
     Indication: HIV INFECTION
     Route: 048
  2. RALTEGRAVIR [Suspect]
     Indication: HIV INFECTION
  3. AMPICILLIN [Suspect]
     Indication: CYTOMEGALOVIRUS CHORIORETINITIS
  4. KALETRA [Concomitant]
     Indication: HIV INFECTION
  5. MINOCYCLINE [Concomitant]
  6. AUGMENTIN '125' [Concomitant]
  7. PYRIMETHAMINE TAB [Concomitant]
  8. CLINDAMYCIN HCL [Concomitant]
  9. REMERON [Concomitant]
  10. LEUCOVORIN CALCIUM [Concomitant]
  11. PENTAMIDINE [Concomitant]
  12. AZITHROMYCIN [Concomitant]
  13. REGLAN [Concomitant]
  14. KEPPRA [Concomitant]
  15. PROMETHAZINE [Concomitant]
  16. VALGANCICLOVIR HCL [Concomitant]
  17. HYDROXYZINE [Concomitant]

REACTIONS (8)
  - CONJUNCTIVITIS [None]
  - CYTOMEGALOVIRUS CHORIORETINITIS [None]
  - EXFOLIATIVE RASH [None]
  - HEPATITIS [None]
  - IMMUNE AGGLUTININS [None]
  - PRURITUS GENERALISED [None]
  - SKIN HYPERPIGMENTATION [None]
  - SWELLING FACE [None]
